FAERS Safety Report 17421077 (Version 2)
Quarter: 2020Q1

REPORT INFORMATION
  Report Type: Spontaneous
  Country: RU (occurrence: RU)
  Receive Date: 20200214
  Receipt Date: 20200217
  Transmission Date: 20200409
  Serious: Yes (Other)
  Sender: FDA-Public Use
  Company Number: RU-TEVA-2020-RU-1186388

PATIENT
  Age: 18 Year
  Sex: Female
  Weight: 50 kg

DRUGS (2)
  1. CONVULSOFIN RETARD [Suspect]
     Active Substance: VALPROATE SODIUM
     Indication: PARTIAL SEIZURES
     Dosage: 1500 MILLIGRAM DAILY;
     Route: 048
     Dates: start: 20180719, end: 20180801
  2. SEISAR [Concomitant]
     Indication: PARTIAL SEIZURES
     Route: 048
     Dates: start: 20160225

REACTIONS (2)
  - Irritability [Recovering/Resolving]
  - Affective disorder [Recovering/Resolving]

NARRATIVE: CASE EVENT DATE: 20180723
